FAERS Safety Report 5363370-6 (Version None)
Quarter: 2007Q2

REPORT INFORMATION
  Report Type: 
  Country: None (occurrence: None)
  Receive Date: 20070620
  Receipt Date: 20070612
  Transmission Date: 20071010
  Serious: Yes (Other)
  Sender: FDA-Public Use
  Company Number: CA-BAYER-200713292GDS

PATIENT
  Age: 77 Year
  Sex: Male

DRUGS (3)
  1. AVELOX [Suspect]
     Indication: DRUG USE FOR UNKNOWN INDICATION
     Route: 065
  2. WARFARIN SODIUM [Interacting]
     Indication: DRUG USE FOR UNKNOWN INDICATION
     Route: 048
  3. XELODA [Interacting]
     Indication: DRUG USE FOR UNKNOWN INDICATION
     Route: 065

REACTIONS (2)
  - GASTROINTESTINAL HAEMORRHAGE [None]
  - PROTHROMBIN TIME PROLONGED [None]
